FAERS Safety Report 18755247 (Version 2)
Quarter: 2021Q1

REPORT INFORMATION
  Report Type: Spontaneous
  Country: US (occurrence: US)
  Receive Date: 20210119
  Receipt Date: 20210225
  Transmission Date: 20210419
  Serious: Yes (Death)
  Sender: FDA-Public Use
  Company Number: NVSC2021US010319

PATIENT
  Sex: Female

DRUGS (1)
  1. COSENTYX [Suspect]
     Active Substance: SECUKINUMAB
     Indication: PSORIASIS
     Dosage: 300 MG, QMO
     Route: 030

REACTIONS (3)
  - Incorrect route of product administration [Unknown]
  - Death [Fatal]
  - COVID-19 [Unknown]

NARRATIVE: CASE EVENT DATE: 202012
